FAERS Safety Report 10341957 (Version 1)
Quarter: 2014Q3

REPORT INFORMATION
  Report Type: Report from Study
  Country: US (occurrence: US)
  Receive Date: 20140725
  Receipt Date: 20140725
  Transmission Date: 20150326
  Serious: Yes (Other)
  Sender: FDA-Public Use
  Company Number: US-ROCHE-1439137

PATIENT
  Sex: Female
  Weight: 31.66 kg

DRUGS (2)
  1. NUTROPIN [Suspect]
     Active Substance: SOMATROPIN
     Indication: GROWTH HORMONE DEFICIENCY
     Route: 058
     Dates: end: 2013
  2. NASONEX [Concomitant]
     Active Substance: MOMETASONE FUROATE
     Route: 045

REACTIONS (2)
  - Growth retardation [Unknown]
  - Thyroid function test abnormal [Unknown]
